FAERS Safety Report 8837648 (Version 1)
Quarter: 2012Q4

REPORT INFORMATION
  Report Type: 
  Country: US (occurrence: US)
  Receive Date: 20121012
  Receipt Date: 20121012
  Transmission Date: 20130627
  Serious: No
  Sender: FDA-Public Use
  Company Number: US-JNJFOC-20121002211

PATIENT
  Age: 64 Year
  Sex: Female

DRUGS (5)
  1. SANDOZ FENTANYL TRANSDERMAL SYSTEM [Suspect]
     Indication: BACK PAIN
     Route: 062
     Dates: start: 2010
  2. VICODIN [Concomitant]
     Indication: BREAKTHROUGH PAIN
     Dosage: 5-500 mg
     Route: 048
     Dates: start: 2002
  3. NEURONTIN [Concomitant]
     Indication: NEURALGIA
     Route: 048
     Dates: start: 2007
  4. ALLEGRA [Concomitant]
     Indication: MULTIPLE ALLERGIES
     Route: 048
     Dates: start: 2009
  5. IPRATROPIUM  BROMIDE [Concomitant]
     Indication: MULTIPLE ALLERGIES
     Route: 045
     Dates: start: 2009

REACTIONS (1)
  - Inappropriate schedule of drug administration [Not Recovered/Not Resolved]
